FAERS Safety Report 4911390-5 (Version None)
Quarter: 2006Q1

REPORT INFORMATION
  Report Type: 
  Country: None (occurrence: None)
  Receive Date: 20060209
  Receipt Date: 20060127
  Transmission Date: 20060701
  Serious: Yes (Death, Hospitalization)
  Sender: FDA-Public Use
  Company Number: GXKR2006JP00531

PATIENT
  Age: 68 Year
  Sex: Male

DRUGS (1)
  1. ALLOPURINOL [Suspect]
     Indication: HYPERURICAEMIA

REACTIONS (9)
  - HEPATIC ENZYME INCREASED [None]
  - HEPATIC FAILURE [None]
  - LYMPHADENOPATHY [None]
  - LYMPHOCYTE MORPHOLOGY ABNORMAL [None]
  - NEUTROPHILIA [None]
  - PNEUMONIA [None]
  - PROTEINURIA [None]
  - RENAL IMPAIRMENT [None]
  - TOXIC EPIDERMAL NECROLYSIS [None]
